FAERS Safety Report 4814843-3 (Version None)
Quarter: 2005Q4

REPORT INFORMATION
  Report Type: 
  Country: None (occurrence: None)
  Receive Date: 20051028
  Receipt Date: 20051021
  Transmission Date: 20060501
  Serious: Yes (Other)
  Sender: FDA-Public Use
  Company Number: PHBS2005CL15764

PATIENT
  Age: 81 Year
  Sex: Female

DRUGS (1)
  1. TAREG D [Suspect]
     Dosage: VALS 160 / HCT 12.5 MG/ DAY
     Route: 048

REACTIONS (1)
  - PNEUMONITIS [None]
